FAERS Safety Report 5163728-4 (Version None)
Quarter: 2006Q4

REPORT INFORMATION
  Report Type: 
  Country: None (occurrence: None)
  Receive Date: 20061204
  Receipt Date: 20061127
  Transmission Date: 20070319
  Serious: Yes (Death)
  Sender: FDA-Public Use
  Company Number: AU-GLAXOSMITHKLINE-B0448930A

PATIENT
  Age: 38 Year
  Sex: Female

DRUGS (8)
  1. MESASAL [Suspect]
     Route: 065
  2. SETRALINE HCL [Suspect]
     Route: 065
  3. CALTRATE [Suspect]
     Route: 065
  4. RANITIDINE [Suspect]
     Route: 065
  5. NITRAZEPAM [Suspect]
     Route: 065
  6. PREDNISONE TAB [Suspect]
     Route: 065
  7. KAPANOL [Suspect]
     Route: 065
  8. CLOZARIL [Suspect]
     Dosage: 575MG PER DAY
     Route: 048
     Dates: start: 19980408, end: 20000720

REACTIONS (6)
  - BLOOD CREATINE PHOSPHOKINASE INCREASED [None]
  - CARDIOMEGALY [None]
  - DRUG LEVEL INCREASED [None]
  - HEPATIC CIRRHOSIS [None]
  - PNEUMONIA [None]
  - SUDDEN DEATH [None]
